FAERS Safety Report 7048918-8 (Version None)
Quarter: 2010Q4

REPORT INFORMATION
  Report Type: 
  Country: None (occurrence: None)
  Receive Date: 20101018
  Receipt Date: 20101007
  Transmission Date: 20110411
  Serious: Yes (Hospitalization)
  Sender: FDA-Public Use
  Company Number: FR-ASTRAZENECA-2010SE47848

PATIENT
  Age: 26540 Day
  Sex: Male

DRUGS (5)
  1. NEXIUM [Suspect]
     Route: 048
  2. FLUDEX [Suspect]
     Indication: HYPERTENSION
     Route: 048
     Dates: end: 20100420
  3. AXELER [Suspect]
     Route: 048
     Dates: end: 20100420
  4. CRESTOR [Concomitant]
     Route: 048
  5. PLAVIX [Concomitant]
     Route: 048

REACTIONS (2)
  - DEHYDRATION [None]
  - HYPONATRAEMIA [None]
